FAERS Safety Report 20829834 (Version 2)
Quarter: 2022Q2

REPORT INFORMATION
  Report Type: Spontaneous
  Country: US (occurrence: US)
  Receive Date: 20220513
  Receipt Date: 20220610
  Transmission Date: 20220721
  Serious: Yes (Other)
  Sender: FDA-Public Use
  Company Number: US-COOPERSURGICAL, INC.-US-2022CPS001466

PATIENT
  Age: 38 Year
  Sex: Female
  Weight: 58.957 kg

DRUGS (1)
  1. PARAGARD T 380A [Suspect]
     Active Substance: COPPER
     Indication: Contraception
     Dosage: UNK
     Route: 015
     Dates: start: 2010, end: 20220427

REACTIONS (4)
  - Cervix scarring [Not Recovered/Not Resolved]
  - Complication of device removal [Recovered/Resolved]
  - Post-traumatic stress disorder [Unknown]
  - Device use issue [Unknown]

NARRATIVE: CASE EVENT DATE: 20220427
